FAERS Safety Report 8166659-0 (Version None)
Quarter: 2012Q1

REPORT INFORMATION
  Report Type: 
  Country: None (occurrence: None)
  Receive Date: 20120221
  Receipt Date: 20120210
  Transmission Date: 20120608
  Serious: Yes (Other)
  Sender: FDA-Public Use
  Company Number: TCI2012A00658

PATIENT
  Age: 79 Year
  Sex: Male

DRUGS (5)
  1. ACTOS [Suspect]
     Indication: DIABETES MELLITUS
     Dosage: 15 MG (15 MG, 1 D)
     Route: 048
     Dates: start: 20060427, end: 20060908
  2. GLIMICRON (GLICLAZIDE) [Concomitant]
  3. TS-071 (DRUG USED IN DIABETES) [Concomitant]
  4. NORVASC [Concomitant]
  5. METFORMIN HCL [Concomitant]

REACTIONS (1)
  - TRANSITIONAL CELL CARCINOMA [None]
